FAERS Safety Report 5812461-1 (Version None)
Quarter: 2008Q3

REPORT INFORMATION
  Report Type: 
  Country: None (occurrence: None)
  Receive Date: 20080715
  Receipt Date: 20080715
  Transmission Date: 20090109
  Serious: Yes (Life-Threatening, Other)
  Sender: FDA-Public Use
  Company Number: None

PATIENT
  Age: 41 Year
  Sex: Female
  Weight: 63.05 kg

DRUGS (1)
  1. MIDAZOLAM HCL [Suspect]
     Dosage: 1 MG -10 MG TOTAL- EVEYR 5-10 MIN IV
     Route: 042
     Dates: start: 20080410

REACTIONS (9)
  - AMNESIA [None]
  - ANXIETY [None]
  - BLOOD PRESSURE INCREASED [None]
  - DEPRESSION [None]
  - HEART RATE INCREASED [None]
  - PANIC ATTACK [None]
  - POST PROCEDURAL COMPLICATION [None]
  - PROCEDURAL COMPLICATION [None]
  - SUICIDAL IDEATION [None]
